FAERS Safety Report 7511899-4 (Version None)
Quarter: 2011Q2

REPORT INFORMATION
  Report Type: 
  Country: None (occurrence: None)
  Receive Date: 20110531
  Receipt Date: 20110526
  Transmission Date: 20111010
  Serious: Yes (Hospitalization)
  Sender: FDA-Public Use
  Company Number: NL-PFIZER INC-2011114701

PATIENT
  Age: 47 Year
  Sex: Female
  Weight: 70 kg

DRUGS (5)
  1. AROMASIN [Suspect]
     Indication: BREAST CANCER METASTATIC
     Dosage: 25 MG, 1X/DAY
     Dates: start: 20101206, end: 20110509
  2. NORTRIPTYLINE HCL [Concomitant]
     Dosage: UNK
     Dates: start: 20080101
  3. PERINDOPRIL ERBUMINE [Concomitant]
     Dosage: 2 MG, 1X/DAY
     Dates: start: 20110301
  4. FUROSEMIDE [Concomitant]
     Dosage: 40 MG, 2X/DAY
     Dates: start: 20110301
  5. TEMAZEPAM [Concomitant]
     Dosage: 10 MG, 1X/DAY
     Dates: start: 20080101

REACTIONS (2)
  - ABDOMINAL DISCOMFORT [None]
  - PANCREATITIS [None]
